FAERS Safety Report 5854442-8 (Version None)
Quarter: 2008Q3

REPORT INFORMATION
  Report Type: 
  Country: None (occurrence: None)
  Receive Date: 20080822
  Receipt Date: 20080812
  Transmission Date: 20090109
  Serious: Yes (Death, Hospitalization, Other)
  Sender: FDA-Public Use
  Company Number: JP-PFIZER INC-2008066213

PATIENT
  Age: 75 Year
  Sex: Male

DRUGS (2)
  1. VFEND [Suspect]
     Indication: PULMONARY MYCOSIS
     Dosage: DAILY DOSE:400MG
     Route: 048
     Dates: start: 20080729, end: 20080803
  2. VFEND [Suspect]
     Dosage: DAILY DOSE:4MG/KG
     Route: 042
     Dates: start: 20080804, end: 20080805

REACTIONS (4)
  - BLOOD ALKALINE PHOSPHATASE INCREASED [None]
  - DEATH [None]
  - GAMMA-GLUTAMYLTRANSFERASE INCREASED [None]
  - TRANSAMINASES INCREASED [None]
